FAERS Safety Report 13664393 (Version 1)
Quarter: 2017Q2

REPORT INFORMATION
  Report Type: Spontaneous
  Country: US (occurrence: US)
  Receive Date: 20170616
  Receipt Date: 20170616
  Transmission Date: 20170830
  Serious: Yes (Other)
  Sender: FDA-Public Use
  Company Number: None

PATIENT
  Age: 67 Year
  Sex: Female

DRUGS (1)
  1. IBRANCE [Suspect]
     Active Substance: PALBOCICLIB
     Indication: BREAST CANCER
     Dosage: 100MG ONCE A DAY FOR 21 DAYS AND THEN 7 DAYS BY MOUTH
     Route: 048
     Dates: start: 20170503

REACTIONS (1)
  - Skin hypertrophy [None]

NARRATIVE: CASE EVENT DATE: 20170515
